FAERS Safety Report 13349580 (Version 1)
Quarter: 2017Q1

REPORT INFORMATION
  Report Type: Report from Study
  Country: DO (occurrence: DO)
  Receive Date: 20170320
  Receipt Date: 20170320
  Transmission Date: 20170428
  Serious: Yes (Hospitalization, Other)
  Sender: FDA-Public Use
  Company Number: PHHY2017DO040949

PATIENT
  Sex: Female

DRUGS (1)
  1. DIOVAN [Suspect]
     Active Substance: VALSARTAN
     Indication: HYPERTENSION
     Dosage: 80 MG, UNK
     Route: 065

REACTIONS (6)
  - Malaise [Unknown]
  - Asthenia [Unknown]
  - Dementia [Unknown]
  - Deafness [Unknown]
  - Gastric disorder [Unknown]
  - Dysarthria [Unknown]
